FAERS Safety Report 7141050-4 (Version None)
Quarter: 2010Q4

REPORT INFORMATION
  Report Type: 
  Country: None (occurrence: None)
  Receive Date: 20101122
  Receipt Date: 20101105
  Transmission Date: 20110411
  Serious: Yes (Hospitalization)
  Sender: FDA-Public Use
  Company Number: 013848

PATIENT
  Sex: Female
  Weight: 84 kg

DRUGS (6)
  1. VIMPAT [Suspect]
     Indication: PARTIAL SEIZURES
     Dosage: (100 MG BID ORAL)
     Route: 048
     Dates: start: 20100201, end: 20100325
  2. TRILEPTAL [Suspect]
     Indication: EPILEPSY
     Dosage: (600 MG BID ORAL)
     Route: 048
     Dates: start: 20000101, end: 20100901
  3. KEPPRA [Suspect]
     Indication: EPILEPSY
     Dosage: (1000 MG BID ORAL)
     Route: 048
     Dates: start: 20060101
  4. TEGRETOL [Suspect]
     Dates: start: 20100901
  5. ATARAX [Concomitant]
  6. FELBAMATE [Concomitant]

REACTIONS (18)
  - ABDOMINAL PAIN [None]
  - ANTICONVULSANT DRUG LEVEL INCREASED [None]
  - BLOOD CHLORIDE DECREASED [None]
  - BLOOD CREATININE DECREASED [None]
  - BLOOD PHOSPHORUS INCREASED [None]
  - BLOOD UREA DECREASED [None]
  - DIPLOPIA [None]
  - DRUG INTERACTION [None]
  - EOSINOPHIL COUNT DECREASED [None]
  - EPILEPSY [None]
  - GAMMA-GLUTAMYLTRANSFERASE INCREASED [None]
  - HAEMATOCRIT DECREASED [None]
  - HAEMOGLOBIN DECREASED [None]
  - HEADACHE [None]
  - HYPONATRAEMIA [None]
  - PROTEIN TOTAL DECREASED [None]
  - RED BLOOD CELL COUNT DECREASED [None]
  - VERTIGO [None]
